FAERS Safety Report 13015625 (Version 3)
Quarter: 2017Q1

REPORT INFORMATION
  Report Type: Report from Study
  Country: US (occurrence: US)
  Receive Date: 20161212
  Receipt Date: 20170102
  Transmission Date: 20170428
  Serious: Yes (Hospitalization)
  Sender: FDA-Public Use
  Company Number: US-ROCHE-1786349

PATIENT
  Age: 89 Year
  Sex: Male
  Weight: 78.9 kg

DRUGS (21)
  1. MEDROL [Concomitant]
     Active Substance: METHYLPREDNISOLONE
     Dosage: PACK #2
     Route: 065
     Dates: start: 20161104, end: 20161108
  2. ATIVAN [Concomitant]
     Active Substance: LORAZEPAM
     Indication: INSOMNIA
     Route: 065
     Dates: start: 20161031
  3. VITAMIN D3 [Concomitant]
     Active Substance: CHOLECALCIFEROL
  4. MEDROL [Concomitant]
     Active Substance: METHYLPREDNISOLONE
     Dosage: PACK #3
     Route: 065
     Dates: start: 20161128, end: 20161130
  5. CLARITIN (UNITED STATES) [Concomitant]
     Indication: RASH MACULO-PAPULAR
  6. CLARITIN (UNITED STATES) [Concomitant]
     Indication: VISION BLURRED
  7. ATEZOLIZUMAB [Suspect]
     Active Substance: ATEZOLIZUMAB
     Indication: MYELODYSPLASTIC SYNDROME
     Dosage: ON DAYS 8 AND 22 OF EACH 28-DAY CYCLE?DOSE AND FREQUENCY TAKEN FROM STUDY PROTOCOL, MOST RECENT DOSE
     Route: 042
     Dates: start: 20160613
  8. ZANTAC [Concomitant]
     Active Substance: RANITIDINE HYDROCHLORIDE
     Indication: RASH MACULO-PAPULAR
  9. ZANTAC [Concomitant]
     Active Substance: RANITIDINE HYDROCHLORIDE
     Indication: VISION BLURRED
  10. ZANTAC [Concomitant]
     Active Substance: RANITIDINE HYDROCHLORIDE
     Indication: LACRIMATION INCREASED
  11. AZACITIDINE. [Suspect]
     Active Substance: AZACITIDINE
     Indication: MYELODYSPLASTIC SYNDROME
     Dosage: DOSE TAKEN FROM STUDY PROTOCOL?DATE OF MOST RECENT DOSE 14/JUN/2016 AT 13:22, DOSE: 152 MG?MOST RECE
     Route: 042
     Dates: start: 20160606
  12. BIOTIN [Concomitant]
     Active Substance: BIOTIN
  13. ZOFRAN [Concomitant]
     Active Substance: ONDANSETRON HYDROCHLORIDE
     Indication: NAUSEA
     Route: 065
     Dates: start: 201606
  14. CLARITIN (UNITED STATES) [Concomitant]
     Indication: PRURITUS
     Route: 065
     Dates: start: 20161104
  15. LISINOPRIL. [Concomitant]
     Active Substance: LISINOPRIL
     Indication: HYPERTENSION
     Route: 065
     Dates: start: 20161104, end: 20161111
  16. CIPROFLOXACIN. [Concomitant]
     Active Substance: CIPROFLOXACIN
     Indication: INFECTION PROPHYLAXIS
     Route: 065
     Dates: start: 20161031, end: 20161111
  17. CLARITIN (UNITED STATES) [Concomitant]
     Indication: LACRIMATION INCREASED
  18. LISINOPRIL. [Concomitant]
     Active Substance: LISINOPRIL
     Route: 065
     Dates: start: 20161111
  19. MEDROL [Concomitant]
     Active Substance: METHYLPREDNISOLONE
     Indication: RASH MACULO-PAPULAR
     Dosage: PACK #1
     Route: 065
     Dates: start: 20161028, end: 20161101
  20. KENALOG [Concomitant]
     Active Substance: TRIAMCINOLONE ACETONIDE
     Indication: RASH MACULO-PAPULAR
     Route: 065
     Dates: start: 20161104
  21. ZANTAC [Concomitant]
     Active Substance: RANITIDINE HYDROCHLORIDE
     Indication: PRURITUS
     Route: 065
     Dates: start: 20161104

REACTIONS (2)
  - Febrile neutropenia [Recovered/Resolved]
  - Febrile neutropenia [Recovered/Resolved]

NARRATIVE: CASE EVENT DATE: 20160625
